FAERS Safety Report 10227205 (Version 1)
Quarter: 2014Q2

REPORT INFORMATION
  Report Type: Spontaneous
  Country: IT (occurrence: IT)
  Receive Date: 20140610
  Receipt Date: 20140610
  Transmission Date: 20141212
  Serious: Yes (Other)
  Sender: FDA-Public Use
  Company Number: IT-MYLANLABS-2014S1012811

PATIENT
  Age: 34 Year
  Sex: Female
  Weight: 57 kg

DRUGS (1)
  1. IBUPROFEN [Suspect]
     Indication: MIGRAINE
     Route: 048
     Dates: start: 20140506

REACTIONS (2)
  - Exophthalmos [Recovering/Resolving]
  - Swelling face [Recovering/Resolving]
